FAERS Safety Report 7275353-X (Version None)
Quarter: 2011Q1

REPORT INFORMATION
  Report Type: 
  Country: None (occurrence: None)
  Receive Date: 20110204
  Receipt Date: 20110127
  Transmission Date: 20110831
  Serious: Yes (Other)
  Sender: FDA-Public Use
  Company Number: PL-ROCHE-756231

PATIENT
  Age: 64 Year
  Sex: Female

DRUGS (8)
  1. HERCEPTIN [Suspect]
     Route: 065
     Dates: start: 20051201, end: 20080201
  2. LAPATINIB [Suspect]
     Indication: BREAST CANCER
     Route: 065
     Dates: start: 20080301
  3. XELODA [Suspect]
     Indication: BREAST CANCER
     Route: 065
     Dates: start: 20080301
  4. HERCEPTIN [Suspect]
     Indication: BREAST CANCER
     Dosage: PATIENT RECEIVED 12 DOSES.
     Route: 065
     Dates: start: 20050101
  5. VINORELBINE [Concomitant]
     Dates: start: 20051001
  6. PACLITAXEL [Concomitant]
  7. HERCEPTIN [Suspect]
     Dosage: TRASTUZUMAB WAS DISCONTINUED FOR A MONTH
     Route: 065
     Dates: start: 20100601
  8. FLUOROURACIL [Concomitant]
     Dates: start: 20051001

REACTIONS (3)
  - EJECTION FRACTION DECREASED [None]
  - LEUKOPENIA [None]
  - PALMAR-PLANTAR ERYTHRODYSAESTHESIA SYNDROME [None]
